FAERS Safety Report 6457436-7 (Version None)
Quarter: 2009Q4

REPORT INFORMATION
  Report Type: 
  Country: None (occurrence: None)
  Receive Date: 20091125
  Receipt Date: 20091116
  Transmission Date: 20100525
  Serious: Yes (Hospitalization, Disabling)
  Sender: FDA-Public Use
  Company Number: JP-ABBOTT-02P-087-0202292-00

PATIENT
  Sex: Male

DRUGS (17)
  1. KALETRA [Suspect]
     Indication: HIV INFECTION
     Route: 048
     Dates: start: 20010904, end: 20061204
  2. KALETRA [Suspect]
     Route: 048
  3. KALETRA [Suspect]
     Indication: HIV INFECTION
     Route: 048
     Dates: start: 20061205, end: 20070917
  4. KALETRA [Suspect]
     Dosage: 800/200MG
     Route: 048
     Dates: start: 20070926, end: 20071012
  5. NORVIR [Suspect]
     Indication: HIV INFECTION
     Dosage: 200 MG DAILY
     Dates: start: 20071013, end: 20081008
  6. LAMIVUDINE [Suspect]
     Indication: HIV INFECTION
     Route: 048
     Dates: start: 20050510, end: 20051109
  7. LAMIVUDINE [Suspect]
     Route: 048
     Dates: start: 20060509, end: 20070917
  8. TENOFOVIR DISOPROXIL FUMARATE [Suspect]
     Indication: HIV INFECTION
     Dates: start: 20020131, end: 20070917
  9. STAVUDINE [Suspect]
     Indication: HIV INFECTION
     Route: 048
     Dates: start: 20060509, end: 20070917
  10. EMTRICITABINE AND TENOFOVIR DISOPROXIL FUMARATE [Suspect]
     Indication: HIV INFECTION
     Dosage: 200 MG DAILY
     Route: 048
     Dates: start: 20071013, end: 20081008
  11. EFAVIRENZ [Suspect]
     Indication: HIV INFECTION
     Dosage: 600 MG DAILY
     Route: 048
     Dates: start: 20071013, end: 20080925
  12. DARUNAVIR [Suspect]
     Indication: HIV INFECTION
     Route: 048
     Dates: start: 20071013, end: 20081008
  13. ENFUVIRTIDE [Suspect]
     Indication: HIV INFECTION
     Route: 048
     Dates: start: 20071013, end: 20071110
  14. ENFUVIRTIDE [Suspect]
     Dates: start: 20080507, end: 20080925
  15. RALTEGRAVIR [Suspect]
     Indication: HIV INFECTION
     Route: 048
     Dates: start: 20071013, end: 20081008
  16. SULFAMETHOXAZOLE AND TRIMETHOPRIM [Concomitant]
     Indication: ANTIFUNGAL PROPHYLAXIS
     Route: 048
     Dates: start: 20010824, end: 20030220
  17. LAMIVUDINE/ABACAVIR [Concomitant]
     Indication: HIV INFECTION
     Route: 048
     Dates: start: 20051110

REACTIONS (9)
  - ANAEMIA [None]
  - BLOOD ALKALINE PHOSPHATASE INCREASED [None]
  - BLOOD TRIGLYCERIDES INCREASED [None]
  - DEPRESSION [None]
  - ENCEPHALITIS VIRAL [None]
  - ERYTHEMA [None]
  - GAMMA-GLUTAMYLTRANSFERASE INCREASED [None]
  - HEPATIC FUNCTION ABNORMAL [None]
  - MYALGIA [None]
